FAERS Safety Report 11547686 (Version 2)
Quarter: 2015Q4

REPORT INFORMATION
  Report Type: Spontaneous
  Country: CA (occurrence: CA)
  Receive Date: 20150924
  Receipt Date: 20151012
  Transmission Date: 20160304
  Serious: Yes (Other)
  Sender: FDA-Public Use
  Company Number: CA-VALIDUS PHARMACEUTICALS LLC-CA-2015VAL000092

PATIENT

DRUGS (22)
  1. AVELOX [Concomitant]
     Active Substance: MOXIFLOXACIN HYDROCHLORIDE
     Dosage: 400 MG, QD
     Route: 048
  2. METOPROLOL TARTRATE. [Suspect]
     Active Substance: METOPROLOL TARTRATE
     Dosage: 175 MG, BID
     Route: 048
     Dates: start: 20150105
  3. APO-SALVENT                        /00139501/ [Concomitant]
     Dosage: UNK
  4. FUROSEMIDE. [Concomitant]
     Active Substance: FUROSEMIDE
     Dosage: UNK
  5. SOLIRIS [Suspect]
     Active Substance: ECULIZUMAB
     Indication: PRODUCT USED FOR UNKNOWN INDICATION
     Dosage: UNK
  6. CARDURA [Suspect]
     Active Substance: DOXAZOSIN MESYLATE
     Indication: PRODUCT USED FOR UNKNOWN INDICATION
     Dosage: UNK
  7. METOPROLOL TARTRATE. [Suspect]
     Active Substance: METOPROLOL TARTRATE
     Indication: HYPERTENSION
     Dosage: UNK
     Route: 048
     Dates: start: 2014
  8. MENVEO [Suspect]
     Active Substance: NEISSERIA MENINGITIDIS GROUP A CAPSULAR OLIGOSACCHARIDE DIPHTHERIA CRM197 PROTEIN CONJUGATE ANTIGEN\NEISSERIA MENINGITIDIS GROUP C CAPSULAR OLIGOSACCHARIDE DIPHTHERIA CRM197 PROTEIN CONJUGATE ANTIGEN\NEISSERIA MENINGITIDIS GROUP W-135 CAPSULAR OLIGOSACCHARIDE DIPHTHERIA CRM197 PROTEIN CONJUGATE ANTI
     Indication: IMMUNISATION
     Dosage: 1 DF, INJECTION NOS
     Dates: start: 20140506
  9. APO-HYDRALAZINE [Suspect]
     Active Substance: HYDRALAZINE HYDROCHLORIDE
     Indication: PRODUCT USED FOR UNKNOWN INDICATION
     Dosage: UNK
  10. PANTOPRAZOLE [Concomitant]
     Active Substance: PANTOPRAZOLE SODIUM
     Dosage: UNK
  11. NOVOGESIC                          /00020001/ [Concomitant]
     Dosage: UNK
  12. ADVAGRAF [Concomitant]
     Active Substance: TACROLIMUS
     Dosage: UNK
  13. DOCUSATE SODIUM. [Concomitant]
     Active Substance: DOCUSATE SODIUM
     Dosage: UNK
  14. TYLENOL [Concomitant]
     Active Substance: ACETAMINOPHEN
     Dosage: UNK
  15. IRBESARTAN. [Concomitant]
     Active Substance: IRBESARTAN
     Dosage: UNK
  16. FORZA [Concomitant]
     Dosage: UNK
  17. ATORVASTATIN [Concomitant]
     Active Substance: ATORVASTATIN
     Dosage: UNK
  18. AMOXYL [Concomitant]
     Active Substance: AMOXICILLIN
     Dosage: UNK
  19. AVELOX [Concomitant]
     Active Substance: MOXIFLOXACIN HYDROCHLORIDE
     Dosage: 400 MG, QD
     Route: 048
  20. PMS-SENNOSIDES [Concomitant]
     Dosage: UNK
  21. CARDURA [Suspect]
     Active Substance: DOXAZOSIN MESYLATE
     Dosage: 16 MG, UNK
  22. MAGNESIUM [Concomitant]
     Active Substance: MAGNESIUM
     Dosage: UNK

REACTIONS (22)
  - Sputum discoloured [Unknown]
  - Fatigue [Recovered/Resolved]
  - Pain [Unknown]
  - Road traffic accident [Unknown]
  - Sinusitis [Recovered/Resolved]
  - Bone disorder [Unknown]
  - Body temperature increased [Recovered/Resolved]
  - Bronchitis [Unknown]
  - Fall [Unknown]
  - Increased bronchial secretion [Unknown]
  - Headache [Unknown]
  - Contusion [Unknown]
  - Hypertension [Unknown]
  - Ligament sprain [Unknown]
  - Arthritis [Unknown]
  - Respiratory tract infection [Unknown]
  - Productive cough [Unknown]
  - Sinus headache [Unknown]
  - Weight increased [Unknown]
  - Drug administered to patient of inappropriate age [Unknown]
  - Cough [Unknown]
  - Dysphonia [Unknown]

NARRATIVE: CASE EVENT DATE: 20140506
